FAERS Safety Report 22640114 (Version 6)
Quarter: 2024Q4

REPORT INFORMATION
  Report Type: Spontaneous
  Country: CA (occurrence: CA)
  Receive Date: 20230626
  Receipt Date: 20241011
  Transmission Date: 20250115
  Serious: Yes (Hospitalization, Other)
  Sender: CELLTRION
  Company Number: CA-CELLTRION INC.-2021CA019441

PATIENT

DRUGS (100)
  1. RITUXIMAB [Suspect]
     Active Substance: RITUXIMAB
     Indication: Systemic lupus erythematosus
     Dosage: 1000 MG
     Route: 042
  2. RITUXIMAB [Suspect]
     Active Substance: RITUXIMAB
     Dosage: 1000 MG
     Route: 042
  3. RITUXIMAB [Suspect]
     Active Substance: RITUXIMAB
     Dosage: 1000 MG
     Route: 042
  4. RITUXIMAB [Suspect]
     Active Substance: RITUXIMAB
     Dosage: 1000 MG
     Route: 042
  5. RITUXIMAB [Suspect]
     Active Substance: RITUXIMAB
     Dosage: 1000 MG
     Route: 042
  6. RITUXIMAB [Suspect]
     Active Substance: RITUXIMAB
     Dosage: 1000 MG
     Route: 042
  7. RITUXIMAB [Suspect]
     Active Substance: RITUXIMAB
     Dosage: 1000 MG
     Route: 042
  8. AMLODIPINE [Suspect]
     Active Substance: AMLODIPINE BESYLATE
     Indication: Hypertension
     Dosage: 5 MG, 1 EVERY 1 DAY
     Route: 048
  9. AMLODIPINE BESYLATE [Suspect]
     Active Substance: AMLODIPINE BESYLATE
     Indication: Hypertension
     Dosage: 5 MG, QD, 1 EVERY 1 DAYS
     Route: 048
  10. AMLODIPINE BESYLATE [Suspect]
     Active Substance: AMLODIPINE BESYLATE
     Dosage: 5 MG, QD, 1 EVERY 1 DAYS
     Route: 048
  11. AMLODIPINE BESYLATE [Suspect]
     Active Substance: AMLODIPINE BESYLATE
     Dosage: 1.0 DOSAGE FORM, 1 EVERY 1 DAYS
     Route: 048
  12. APIXABAN [Suspect]
     Active Substance: APIXABAN
     Indication: Deep vein thrombosis
     Dosage: 5 MILLIGRAM, 2 EVERY 1 DAYS
     Route: 048
  13. LEUCOVORIN CALCIUM [Suspect]
     Active Substance: LEUCOVORIN CALCIUM
     Indication: Product used for unknown indication
     Dosage: 5.0 MILLIGRAM, 1 EVERY 1 DAY
     Route: 048
  14. LEUCOVORIN CALCIUM [Suspect]
     Active Substance: LEUCOVORIN CALCIUM
     Dosage: 1.0 DOSAGE FORM, 1 EVERY 1 DAY
     Route: 048
  15. CALCIUM LACTATE\CALCIUM PHOSPHATE\CHOLECALCIFEROL [Suspect]
     Active Substance: CALCIUM LACTATE\CALCIUM PHOSPHATE\CHOLECALCIFEROL
     Indication: Product used for unknown indication
     Dosage: 1.0 DOSAGE FORM, 1 EVERY 1 DAY
     Route: 065
  16. CALCIUM LACTATE\CALCIUM PHOSPHATE\CHOLECALCIFEROL [Suspect]
     Active Substance: CALCIUM LACTATE\CALCIUM PHOSPHATE\CHOLECALCIFEROL
     Dosage: 1.0 DOSAGE FORM, 1 EVERY 1 DAY
     Route: 048
  17. CALCIUM LACTATE\CALCIUM PHOSPHATE\CHOLECALCIFEROL [Suspect]
     Active Substance: CALCIUM LACTATE\CALCIUM PHOSPHATE\CHOLECALCIFEROL
     Dosage: 50 MG
     Route: 048
  18. CALCIUM LACTATE\CALCIUM PHOSPHATE\CHOLECALCIFEROL [Suspect]
     Active Substance: CALCIUM LACTATE\CALCIUM PHOSPHATE\CHOLECALCIFEROL
     Dosage: 50 MG, 1 EVERY 1 DAY
     Route: 048
  19. CALCIUM CARBONATE [Suspect]
     Active Substance: CALCIUM CARBONATE
     Indication: Product used for unknown indication
     Dosage: 1 DOSAGE FORM 1 EVERY 1 DAY
     Route: 048
  20. DIPHENHYDRAMINE HYDROCHLORIDE [Suspect]
     Active Substance: DIPHENHYDRAMINE HYDROCHLORIDE
     Indication: Premedication
     Dosage: 50 MG
     Route: 048
  21. DIPHENHYDRAMINE HYDROCHLORIDE [Suspect]
     Active Substance: DIPHENHYDRAMINE HYDROCHLORIDE
     Dosage: 50 MG
     Route: 048
  22. DIPHENHYDRAMINE HYDROCHLORIDE [Suspect]
     Active Substance: DIPHENHYDRAMINE HYDROCHLORIDE
     Dosage: 50 MG
     Route: 048
  23. DIPHENHYDRAMINE [Suspect]
     Active Substance: DIPHENHYDRAMINE
     Indication: Premedication
     Dosage: 50 MILLIGRAM, 1 EVERY 1 DAY
     Route: 065
  24. ELIQUIS [Suspect]
     Active Substance: APIXABAN
     Indication: Deep vein thrombosis
     Dosage: 5.0 MG, 2 EVERY 1 DAY
     Route: 048
  25. MYCOPHENOLATE SODIUM [Suspect]
     Active Substance: MYCOPHENOLATE SODIUM
     Indication: Systemic lupus erythematosus
     Dosage: 300 MG, 2 EVERY 1 DAYS
     Route: 048
  26. MYCOPHENOLATE SODIUM [Suspect]
     Active Substance: MYCOPHENOLATE SODIUM
     Dosage: 360 MG, 2 EVERY 1 DAYS
     Route: 048
  27. MYCOPHENOLATE SODIUM [Suspect]
     Active Substance: MYCOPHENOLATE SODIUM
     Dosage: 720 MG, 2 EVERY 1 DAY
     Route: 048
  28. MYCOPHENOLATE SODIUM [Suspect]
     Active Substance: MYCOPHENOLATE SODIUM
     Dosage: 360 MG, 2 EVERY 1 DAYS
     Route: 048
  29. MYCOPHENOLATE SODIUM [Suspect]
     Active Substance: MYCOPHENOLATE SODIUM
     Dosage: 300 MG, 2 EVERY 1 DAYS
     Route: 048
  30. MYCOPHENOLATE SODIUM [Suspect]
     Active Substance: MYCOPHENOLATE SODIUM
     Dosage: 720 MG
     Route: 048
  31. MYCOPHENOLATE SODIUM [Suspect]
     Active Substance: MYCOPHENOLATE SODIUM
     Dosage: 360 MG, 2 EVERY 1 DAYS
     Route: 048
  32. FOLIC ACID [Suspect]
     Active Substance: FOLIC ACID
     Indication: Product used for unknown indication
     Dosage: 5 MG, 1 EVERY 1 DAY
     Route: 048
  33. FOLIC ACID [Suspect]
     Active Substance: FOLIC ACID
     Indication: Product used for unknown indication
     Dosage: 5 MG, 1 EVERY 1 DAYS
     Route: 048
  34. HYDROXYCHLOROQUINE [Suspect]
     Active Substance: HYDROXYCHLOROQUINE
     Indication: Product used for unknown indication
     Dosage: 400 MILLIGRAM, 1 EVERY 1 DAYS
     Route: 048
  35. INDAPAMIDE [Suspect]
     Active Substance: INDAPAMIDE
     Indication: Hypertension
     Dosage: 1.25 MG, 1 EVERY 1 DAY
     Route: 048
  36. INDAPAMIDE [Suspect]
     Active Substance: INDAPAMIDE
     Indication: Hypertension
     Dosage: 1.25 MG, 1 EVERY 1 DAY
     Route: 048
  37. INDAPAMIDE [Suspect]
     Active Substance: INDAPAMIDE
     Dosage: 1.25 MG, 1 EVERY 1 DAY
     Route: 048
  38. LEFLUNOMIDE [Suspect]
     Active Substance: LEFLUNOMIDE
     Indication: Product used for unknown indication
     Dosage: UNK
     Route: 065
  39. LEFLUNOMIDE [Suspect]
     Active Substance: LEFLUNOMIDE
     Indication: Product used for unknown indication
     Route: 065
  40. METHOTREXATE [Suspect]
     Active Substance: METHOTREXATE
     Indication: Product used for unknown indication
     Dosage: UNK
     Route: 065
  41. METHOTREXATE [Suspect]
     Active Substance: METHOTREXATE
     Indication: Product used for unknown indication
     Dosage: UNK
     Route: 065
  42. PREDNISONE [Suspect]
     Active Substance: PREDNISONE
     Indication: Arthritis
     Dosage: 10 MILLIGRAM
     Route: 048
  43. PREDNISONE [Suspect]
     Active Substance: PREDNISONE
     Dosage: 50 MILLIGRAM
     Route: 048
  44. PREDNISONE [Suspect]
     Active Substance: PREDNISONE
     Dosage: 50 MILLIGRAM
     Route: 048
  45. PREDNISONE [Suspect]
     Active Substance: PREDNISONE
     Dosage: 1000 MILLIGRAM
     Route: 042
  46. MYFORTIC [Suspect]
     Active Substance: MYCOPHENOLATE SODIUM
     Indication: Systemic lupus erythematosus
     Dosage: 720 MG
     Route: 048
  47. MYFORTIC [Suspect]
     Active Substance: MYCOPHENOLATE SODIUM
     Dosage: 360 MG, 2 EVERY 1 DAY
     Route: 048
  48. MYFORTIC [Suspect]
     Active Substance: MYCOPHENOLATE SODIUM
     Indication: Systemic lupus erythematosus
     Dosage: 360 MG, 2 EVERY 1 DAY
     Route: 048
  49. OLANZAPINE [Suspect]
     Active Substance: OLANZAPINE
     Indication: Psychotic disorder
     Dosage: 10 MG, 1 EVERY 1 DAY
     Route: 048
  50. OLANZAPINE [Suspect]
     Active Substance: OLANZAPINE
     Indication: Psychotic disorder
     Dosage: 10 MILLIGRAM, 1 EVERY 1 DAY
     Route: 048
  51. METHYLPREDNISOLONE SODIUM SUCCINATE [Suspect]
     Active Substance: METHYLPREDNISOLONE SODIUM SUCCINATE
     Indication: Premedication
     Dosage: 500 MG
     Route: 042
  52. METHYLPREDNISOLONE SODIUM SUCCINATE [Suspect]
     Active Substance: METHYLPREDNISOLONE SODIUM SUCCINATE
     Dosage: 100 MG
     Route: 042
  53. METHYLPREDNISOLONE SODIUM SUCCINATE [Suspect]
     Active Substance: METHYLPREDNISOLONE SODIUM SUCCINATE
     Indication: Premedication
     Dosage: 100.0 MILLIGRAM
     Route: 042
  54. METHYLPREDNISOLONE SODIUM SUCCINATE [Suspect]
     Active Substance: METHYLPREDNISOLONE SODIUM SUCCINATE
     Dosage: 500.0 MILLIGRAM
     Route: 042
  55. METHYLPREDNISOLONE SODIUM SUCCINATE [Suspect]
     Active Substance: METHYLPREDNISOLONE SODIUM SUCCINATE
     Dosage: UNK
     Route: 065
  56. MYCOPHENOLATE SODIUM [Suspect]
     Active Substance: MYCOPHENOLATE SODIUM
     Indication: Systemic lupus erythematosus
     Dosage: 720.0 MILLIGRAM
     Route: 048
  57. MYCOPHENOLATE SODIUM [Suspect]
     Active Substance: MYCOPHENOLATE SODIUM
     Dosage: 360 MILLIGRAM, 2 EVERY 1 DAY
     Route: 048
  58. MYCOPHENOLATE SODIUM [Suspect]
     Active Substance: MYCOPHENOLATE SODIUM
     Dosage: 720.0 MILLIGRAM
     Route: 048
  59. MYCOPHENOLATE SODIUM [Suspect]
     Active Substance: MYCOPHENOLATE SODIUM
     Indication: Systemic lupus erythematosus
     Dosage: 360.0 MILLIGRAM, 1 EVERY 1 DAY
     Route: 048
  60. MYCOPHENOLATE SODIUM [Suspect]
     Active Substance: MYCOPHENOLATE SODIUM
     Dosage: 720 MILLIGRAM, 2 EVERY 1 DAY
     Route: 065
  61. MYCOPHENOLATE SODIUM [Suspect]
     Active Substance: MYCOPHENOLATE SODIUM
     Indication: Systemic lupus erythematosus
     Dosage: 720 MILLIGRAM
     Route: 065
  62. MYCOPHENOLATE SODIUM [Suspect]
     Active Substance: MYCOPHENOLATE SODIUM
     Dosage: 360 MILLIGRAM, 2 EVERY 1 DAY
     Route: 048
  63. METHYLPREDNISOLONE [Suspect]
     Active Substance: METHYLPREDNISOLONE
     Indication: Product used for unknown indication
     Dosage: 100 MILLIGRAM
     Route: 042
  64. METHYLPREDNISOLONE [Suspect]
     Active Substance: METHYLPREDNISOLONE
     Dosage: 500 MILLIGRAM
     Route: 042
  65. ACETAMINOPHEN [Suspect]
     Active Substance: ACETAMINOPHEN
     Indication: Premedication
     Dosage: 650 MILLIGRAM
     Route: 048
  66. ACETAMINOPHEN [Suspect]
     Active Substance: ACETAMINOPHEN
     Dosage: 650 MILLIGRAM
     Route: 065
  67. PREDNISONE [Suspect]
     Active Substance: PREDNISONE
     Indication: Arthritis
     Dosage: 10 MILLIGRAM
     Route: 048
  68. PREDNISONE [Suspect]
     Active Substance: PREDNISONE
     Dosage: 50 MILLIGRAM
     Route: 048
  69. APIXABAN [Suspect]
     Active Substance: APIXABAN
     Indication: Deep vein thrombosis
     Dosage: 5 MILLIGRAM, 2 EVERY 1 DAY
     Route: 048
  70. ACETAMINOPHEN [Suspect]
     Active Substance: ACETAMINOPHEN
     Indication: Premedication
     Dosage: 650 MG
     Route: 048
  71. METHOTREXATE [Suspect]
     Active Substance: METHOTREXATE
     Indication: Product used for unknown indication
     Dosage: METHOTREXATE INJECTION, USP; DOSAGE FORM: SOLUTION INTRA-ARTERIAL
     Route: 065
  72. LEFLUNOMIDE [Suspect]
     Active Substance: LEFLUNOMIDE
     Indication: Product used for unknown indication
     Route: 065
  73. MYCOPHENOLIC ACID [Suspect]
     Active Substance: MYCOPHENOLIC ACID
     Indication: Systemic lupus erythematosus
     Dosage: 720.0 MILLIGRAM
     Route: 048
  74. MYCOPHENOLIC ACID [Suspect]
     Active Substance: MYCOPHENOLIC ACID
     Indication: Systemic lupus erythematosus
     Dosage: 360.0 MILLIGRAM, 2 EVERY 1 DAYS
     Route: 048
  75. OLANZAPINE [Suspect]
     Active Substance: OLANZAPINE
     Indication: Psychotic disorder
     Dosage: 10.0 MILLIGRAM, 1 EVERY 1 DAYS
     Route: 048
  76. ACETAMINOPHEN [Concomitant]
     Active Substance: ACETAMINOPHEN
     Indication: Premedication
     Dosage: 650 MILLIGRAM
     Route: 048
  77. ACETAMINOPHEN [Concomitant]
     Active Substance: ACETAMINOPHEN
     Indication: Premedication
     Route: 048
  78. AMLODIPINE [Concomitant]
     Active Substance: AMLODIPINE BESYLATE
     Indication: Hypertension
     Dosage: 5 MILLIGRAM, 1 EVERY 1 DAYS
     Route: 048
  79. APIXABAN [Concomitant]
     Active Substance: APIXABAN
     Indication: Deep vein thrombosis
     Dosage: 5 MG, 2 EVERY 1 DAYS
     Route: 048
  80. CALCIUM CARBONATE\CHOLECALCIFEROL [Concomitant]
     Active Substance: CALCIUM CARBONATE\CHOLECALCIFEROL
     Indication: Product used for unknown indication
     Dosage: 1 DOSAGE FORM, 1 EVERY 1 DAYS
     Route: 048
  81. DIPHENHYDRAMINE [Concomitant]
     Active Substance: DIPHENHYDRAMINE
     Indication: Premedication
     Dosage: 50 MILLIGRAM
     Route: 048
  82. METHYLPREDNISOLONE [Concomitant]
     Active Substance: METHYLPREDNISOLONE
     Indication: Premedication
     Dosage: 100 MILLIGRAM
     Route: 042
  83. METHYLPREDNISOLONE [Concomitant]
     Active Substance: METHYLPREDNISOLONE
     Dosage: 500 MILLIGRAM
     Route: 042
  84. FERRIC POLYSACCHARIDE COMPLEX [Concomitant]
     Active Substance: FERRIC POLYSACCHARIDE COMPLEX
     Indication: Product used for unknown indication
     Dosage: 150.0 MILLIGRAM
     Route: 065
  85. FERRIC POLYSACCHARIDE COMPLEX [Concomitant]
     Active Substance: FERRIC POLYSACCHARIDE COMPLEX
     Dosage: 150.0 MILLIGRAM 1 EVERY 1 DAY
     Route: 048
  86. FERRIC POLYSACCHARIDE COMPLEX [Concomitant]
     Active Substance: FERRIC POLYSACCHARIDE COMPLEX
     Dosage: 150.0 MILLIGRAM
     Route: 065
  87. SERTRALINE [Concomitant]
     Active Substance: SERTRALINE HYDROCHLORIDE
     Indication: Product used for unknown indication
     Dosage: 75.0 MILLIGRAM
     Route: 065
  88. SERTRALINE [Concomitant]
     Active Substance: SERTRALINE HYDROCHLORIDE
     Dosage: 75.0 MILLIGRAM 1 EVERY 1 DAY
     Route: 048
  89. SERTRALINE [Concomitant]
     Active Substance: SERTRALINE HYDROCHLORIDE
     Dosage: 75.0 MILLIGRAM
     Route: 048
  90. PREDNISONE [Concomitant]
     Active Substance: PREDNISONE
     Indication: Arthritis
     Dosage: 10 MG
     Route: 048
  91. PREDNISONE [Concomitant]
     Active Substance: PREDNISONE
     Indication: Arthritis
     Dosage: 50 MG
     Route: 048
  92. PREDNISONE [Concomitant]
     Active Substance: PREDNISONE
     Dosage: 10.0 MG
     Route: 048
  93. DIPHENHYDRAMINE HYDROCHLORIDE [Concomitant]
     Active Substance: DIPHENHYDRAMINE HYDROCHLORIDE
     Indication: Premedication
     Dosage: 50.0 MILLIGRAM
     Route: 048
  94. DIPHENHYDRAMINE HYDROCHLORIDE [Concomitant]
     Active Substance: DIPHENHYDRAMINE HYDROCHLORIDE
     Dosage: 50.0 MILLIGRAM
     Route: 048
  95. LEUCOVORIN CALCIUM [Concomitant]
     Active Substance: LEUCOVORIN CALCIUM
     Dosage: 1 DF, 1 EVERY 1 DAY
     Route: 048
  96. LEUCOVORIN CALCIUM [Concomitant]
     Active Substance: LEUCOVORIN CALCIUM
     Dosage: 5 MG, 1 EVERY 1 DAY
     Route: 048
  97. FERRIC POLYSACCHARIDE COMPLEX [Concomitant]
     Active Substance: FERRIC POLYSACCHARIDE COMPLEX
     Dosage: 150 MG
     Route: 048
  98. METHYLPREDNISOLONE SODIUM SUCCINATE [Concomitant]
     Active Substance: METHYLPREDNISOLONE SODIUM SUCCINATE
     Dosage: 100 MG
     Route: 042
  99. DIMENHYDRINATE [Concomitant]
     Active Substance: DIMENHYDRINATE
     Indication: Product used for unknown indication
     Dosage: 50.0 MILLIGRAM
     Route: 048
  100. HYDROXYCHLOROQUINE [Concomitant]
     Active Substance: HYDROXYCHLOROQUINE
     Indication: Product used for unknown indication
     Dosage: 400.0 MILLIGRAM, 1 EVERY 1 DAYS
     Route: 048

REACTIONS (23)
  - Blood creatinine increased [Recovered/Resolved]
  - Blood urine present [Recovered/Resolved]
  - Butterfly rash [Recovered/Resolved]
  - C-reactive protein increased [Recovered/Resolved]
  - Central nervous system lupus [Recovered/Resolved]
  - Hospitalisation [Recovered/Resolved]
  - Lupus nephritis [Recovered/Resolved]
  - Nephropathy [Recovered/Resolved]
  - Protein urine present [Recovered/Resolved]
  - Psychotic disorder [Recovered/Resolved]
  - Red blood cell sedimentation rate increased [Recovered/Resolved]
  - Systemic lupus erythematosus [Recovered/Resolved]
  - Adverse event [Unknown]
  - Arthralgia [Recovered/Resolved]
  - Haemoglobin decreased [Recovered/Resolved]
  - Mouth ulceration [Recovered/Resolved]
  - Rash [Recovered/Resolved]
  - COVID-19 pneumonia [Recovered/Resolved]
  - Vasculitis [Recovered/Resolved]
  - Drug ineffective [Recovered/Resolved]
  - Product use in unapproved indication [Recovered/Resolved]
  - Off label use [Recovered/Resolved]
  - Intentional product use issue [Unknown]
